FAERS Safety Report 9151784 (Version 1)
Quarter: 2013Q1

REPORT INFORMATION
  Report Type: Spontaneous
  Country: US (occurrence: US)
  Receive Date: 20130308
  Receipt Date: 20130308
  Transmission Date: 20140127
  Serious: No
  Sender: FDA-Public Use
  Company Number: US-GLAXOSMITHKLINE-A0995885A

PATIENT
  Age: 62 Year
  Sex: Female

DRUGS (8)
  1. NICORETTE [Suspect]
     Indication: EX-TOBACCO USER
  2. NICODERM CQ [Suspect]
     Indication: EX-TOBACCO USER
  3. INSULIN [Concomitant]
  4. DIABETES MEDICATION [Concomitant]
     Route: 048
  5. ANTI-HYPERLIPIDEMIC [Concomitant]
  6. ANTIHYPERTENSIVE [Concomitant]
  7. UNSPECIFIED MEDICATION [Concomitant]
  8. ZOLOFT [Concomitant]

REACTIONS (1)
  - Drug ineffective [Unknown]
